FAERS Safety Report 15741583 (Version 3)
Quarter: 2019Q4

REPORT INFORMATION
  Report Type: Spontaneous
  Country: US (occurrence: US)
  Receive Date: 20181219
  Receipt Date: 20191004
  Transmission Date: 20200122
  Serious: Yes (Other)
  Sender: FDA-Public Use
  Company Number: US-SA-2018SA344621

PATIENT
  Age: 62 Year
  Sex: Female
  Weight: 83.9 kg

DRUGS (5)
  1. NEOSAR [Concomitant]
     Active Substance: CYCLOPHOSPHAMIDE
     Indication: BREAST CANCER FEMALE
     Route: 065
  2. TAXOTERE [Suspect]
     Active Substance: DOCETAXEL
     Dosage: UNK, Q3W
     Route: 065
     Dates: start: 20130606, end: 20130606
  3. TAXOTERE [Suspect]
     Active Substance: DOCETAXEL
     Indication: BREAST CANCER FEMALE
     Dosage: UNK UNK, Q3W
     Route: 065
     Dates: start: 20130517, end: 20130517
  4. CYTOXAN [Concomitant]
     Active Substance: CYCLOPHOSPHAMIDE
     Indication: BREAST CANCER FEMALE
     Route: 065
  5. PROZAC [Concomitant]
     Active Substance: FLUOXETINE HYDROCHLORIDE
     Route: 065

REACTIONS (6)
  - Impaired quality of life [Unknown]
  - Alopecia [Recovering/Resolving]
  - Pain [Unknown]
  - Psychological trauma [Unknown]
  - Anxiety [Unknown]
  - Emotional distress [Unknown]

NARRATIVE: CASE EVENT DATE: 20130617
